FAERS Safety Report 10454027 (Version 1)
Quarter: 2014Q3

REPORT INFORMATION
  Report Type: Spontaneous
  Country: US (occurrence: US)
  Receive Date: 20140915
  Receipt Date: 20140915
  Transmission Date: 20150326
  Serious: No
  Sender: FDA-Public Use
  Company Number: US-BRISTOL-MYERS SQUIBB COMPANY-20890901

PATIENT
  Age: 89 Year
  Sex: Male
  Weight: 71.65 kg

DRUGS (10)
  1. METOPROLOL [Concomitant]
     Active Substance: METOPROLOL
  2. MULTIVITAMIN [Concomitant]
     Active Substance: VITAMINS
  3. ISOSORBIDE [Concomitant]
     Active Substance: ISOSORBIDE
     Dosage: 1DF: TWO TABS QAM AND ONE TAB QPM.?30MG TAB
  4. CITALOPRAM [Concomitant]
     Active Substance: CITALOPRAM HYDROBROMIDE
  5. ASPIRIN. [Concomitant]
     Active Substance: ASPIRIN
  6. ATORVASTATIN [Concomitant]
     Active Substance: ATORVASTATIN
  7. MELATONIN [Concomitant]
     Active Substance: MELATONIN
     Dosage: AT EVENING
  8. ELIQUIS [Suspect]
     Active Substance: APIXABAN
     Indication: CEREBROVASCULAR ACCIDENT PROPHYLAXIS
     Dates: start: 2014
  9. TAMSULOSIN [Concomitant]
     Active Substance: TAMSULOSIN
  10. GABAPENTIN. [Concomitant]
     Active Substance: GABAPENTIN

REACTIONS (1)
  - Arthralgia [Unknown]
